FAERS Safety Report 8835500 (Version 1)
Quarter: 2012Q4

REPORT INFORMATION
  Report Type: 
  Country: US (occurrence: US)
  Receive Date: 20121011
  Receipt Date: 20121011
  Transmission Date: 20130627
  Serious: No
  Sender: FDA-Public Use
  Company Number: US-ASTRAZENECA-2011SE17680

PATIENT
  Age: 86 Year
  Sex: Female

DRUGS (2)
  1. NEXIUM [Suspect]
     Route: 048
  2. CRESTOR [Suspect]
     Route: 048

REACTIONS (8)
  - Cataract [Unknown]
  - Eye disorder [Unknown]
  - Gait disturbance [Unknown]
  - Nervousness [Unknown]
  - Fatigue [Unknown]
  - Memory impairment [Unknown]
  - Malaise [Unknown]
  - Drug ineffective [Unknown]
